FAERS Safety Report 6149604-9 (Version None)
Quarter: 2009Q2

REPORT INFORMATION
  Report Type: 
  Country: None (occurrence: None)
  Receive Date: 20090409
  Receipt Date: 20090327
  Transmission Date: 20091009
  Serious: Yes (Other)
  Sender: FDA-Public Use
  Company Number: US-ROCHE-616661

PATIENT
  Sex: Male
  Weight: 80.7 kg

DRUGS (4)
  1. PEG-INTERFERON A-2A (RO 25-8310) [Suspect]
     Indication: HEPATITIS C
     Dosage: FORM: PRE-FILLED SYRINGE
     Route: 065
     Dates: start: 20090212
  2. RIBAVIRIN [Suspect]
     Indication: HEPATITIS C
     Route: 065
     Dates: start: 20090212
  3. VALTREX [Concomitant]
  4. ANDROGEL [Concomitant]
     Dosage: DOSE:: 1% ONCE

REACTIONS (8)
  - ARTHRALGIA [None]
  - EPISTAXIS [None]
  - FATIGUE [None]
  - HAEMATEMESIS [None]
  - HAEMOPTYSIS [None]
  - MUSCLE SPASMS [None]
  - PERIPHERAL COLDNESS [None]
  - VARICES OESOPHAGEAL [None]
